FAERS Safety Report 10153734 (Version 2)
Quarter: 2014Q2

REPORT INFORMATION
  Report Type: Spontaneous
  Country: JP (occurrence: JP)
  Receive Date: 20140506
  Receipt Date: 20140523
  Transmission Date: 20141212
  Serious: Yes (Hospitalization)
  Sender: FDA-Public Use
  Company Number: JP-009507513-1405JPN001898

PATIENT
  Sex: Female

DRUGS (3)
  1. FOSAMAC TABLETS 35MG [Suspect]
     Indication: OSTEOPOROSIS
     Dosage: 35 MG, ONCE A WEEK (1/1 WEEK)
     Route: 048
     Dates: start: 200802
  2. FOSAMAC TABLETS 35MG [Suspect]
     Dosage: 35 MG, ONCE A WEEK (1/1 WEEK)
     Route: 048
  3. METOLATE [Concomitant]
     Route: 048

REACTIONS (5)
  - Compression fracture [Unknown]
  - Gastrointestinal disorder [Not Recovered/Not Resolved]
  - Tooth disorder [Unknown]
  - Tooth extraction [Unknown]
  - Rheumatic disorder [Unknown]
